FAERS Safety Report 6960856-5 (Version None)
Quarter: 2010Q3

REPORT INFORMATION
  Report Type: 
  Country: None (occurrence: None)
  Receive Date: 20100901
  Receipt Date: 20100825
  Transmission Date: 20110219
  Serious: Yes (Hospitalization)
  Sender: FDA-Public Use
  Company Number: JP-ROCHE-724200

PATIENT
  Sex: Female

DRUGS (2)
  1. PEGASYS [Suspect]
     Route: 058
     Dates: start: 20100309, end: 20100813
  2. COPEGUS [Suspect]
     Dosage: DOSE REPORTED AS: 400 MG DAILY (DIVIDED INTO 2 DOSES).
     Route: 048
     Dates: start: 20100309, end: 20100813

REACTIONS (1)
  - RENAL ABSCESS [None]
